FAERS Safety Report 18935656 (Version 2)
Quarter: 2021Q1

REPORT INFORMATION
  Report Type: Spontaneous
  Country: US (occurrence: US)
  Receive Date: 20210224
  Receipt Date: 20210224
  Transmission Date: 20210420
  Serious: Yes (Other)
  Sender: FDA-Public Use
  Company Number: US-PFIZER INC-2021149173

PATIENT
  Age: 52 Year
  Sex: Female

DRUGS (1)
  1. EPINEPHRINE. [Suspect]
     Active Substance: EPINEPHRINE
     Dosage: UNK

REACTIONS (4)
  - Heart rate increased [Unknown]
  - Feeling hot [Unknown]
  - Blood glucose increased [Unknown]
  - Dyspnoea [Unknown]
